FAERS Safety Report 6929595-0 (Version None)
Quarter: 2010Q3

REPORT INFORMATION
  Report Type: 
  Country: None (occurrence: None)
  Receive Date: 20100818
  Receipt Date: 20100727
  Transmission Date: 20110219
  Serious: No
  Sender: FDA-Public Use
  Company Number: US-BAYER-201023688NA

PATIENT
  Age: 37 Year
  Sex: Female

DRUGS (1)
  1. MIRENA [Suspect]
     Indication: CONTRACEPTION
     Dosage: FREQUENCY: CONTINUOUS
     Route: 015
     Dates: end: 20100501

REACTIONS (4)
  - BREAST PAIN [None]
  - DEVICE DISLOCATION [None]
  - MENSTRUATION IRREGULAR [None]
  - PREGNANCY WITH CONTRACEPTIVE DEVICE [None]
